FAERS Safety Report 4449369-2 (Version None)
Quarter: 2004Q3

REPORT INFORMATION
  Report Type: 
  Country: None (occurrence: None)
  Receive Date: 20040913
  Receipt Date: 20040907
  Transmission Date: 20050211
  Serious: Yes (Other)
  Sender: FDA-Public Use
  Company Number: 002646

PATIENT
  Age: 54 Year
  Sex: Female

DRUGS (4)
  1. MEDROXYPROGESTERONE ACETATE [Suspect]
     Dates: start: 19961021, end: 19970421
  2. PREMARIN [Suspect]
     Dates: start: 19961021, end: 19970421
  3. PROVERA [Suspect]
     Dates: start: 19961021, end: 19970421
  4. MEDROXYPROGESTERONE ACETATE [Suspect]
     Dates: start: 19970421, end: 20011101

REACTIONS (1)
  - BREAST CANCER FEMALE [None]
